FAERS Safety Report 9887386 (Version 2)
Quarter: 2014Q1

REPORT INFORMATION
  Report Type: Spontaneous
  Country: KR (occurrence: KR)
  Receive Date: 20140211
  Receipt Date: 20140213
  Transmission Date: 20141002
  Serious: Yes (Hospitalization)
  Sender: FDA-Public Use
  Company Number: KR-ALEXION-A201400316

PATIENT
  Age: 61 Year
  Sex: Male
  Weight: 57 kg

DRUGS (5)
  1. SOLIRIS 300MG [Suspect]
     Indication: PAROXYSMAL NOCTURNAL HAEMOGLOBINURIA
     Dosage: 600 MG, QW
     Route: 042
     Dates: start: 20121205, end: 20121226
  2. SOLIRIS 300MG [Suspect]
     Dosage: 900 MG, Q2W
     Route: 042
     Dates: start: 20130116
  3. PREDNISOLONE [Concomitant]
     Indication: PAROXYSMAL NOCTURNAL HAEMOGLOBINURIA
     Dosage: 10 MG
     Route: 048
     Dates: start: 20131204
  4. GLIMEPIRIDE [Concomitant]
     Indication: DIABETES MELLITUS
     Dosage: 4 MG UNK
     Route: 048
     Dates: start: 20130731, end: 20131023
  5. GLIMEPIRIDE [Concomitant]
     Dosage: 6 MG, UNK
     Route: 048
     Dates: start: 20131023

REACTIONS (2)
  - Bile duct stone [Recovered/Resolved]
  - Peritonitis [Recovered/Resolved]
